FAERS Safety Report 8203227-6 (Version None)
Quarter: 2012Q1

REPORT INFORMATION
  Report Type: 
  Country: None (occurrence: None)
  Receive Date: 20120312
  Receipt Date: 20120228
  Transmission Date: 20120608
  Serious: Yes (Other)
  Sender: FDA-Public Use
  Company Number: US-ROCHE-1027267

PATIENT
  Sex: Female

DRUGS (1)
  1. ZELBORAF [Suspect]
     Indication: PRODUCT USED FOR UNKNOWN INDICATION

REACTIONS (9)
  - RASH [None]
  - MYALGIA [None]
  - PARTIAL SEIZURES [None]
  - SQUAMOUS CELL CARCINOMA [None]
  - FATIGUE [None]
  - ARTHRALGIA [None]
  - FURUNCLE [None]
  - ELECTROCARDIOGRAM QT PROLONGED [None]
  - SKIN MASS [None]
